FAERS Safety Report 21294258 (Version 1)
Quarter: 2022Q3

REPORT INFORMATION
  Report Type: Spontaneous
  Country: US (occurrence: US)
  Receive Date: 20220905
  Receipt Date: 20220905
  Transmission Date: 20221027
  Serious: Yes (Hospitalization)
  Sender: FDA-Public Use
  Company Number: US-KYOWAKIRIN-2022BKK013744

PATIENT

DRUGS (1)
  1. CRYSVITA [Suspect]
     Active Substance: BUROSUMAB-TWZA
     Indication: Hypophosphataemia
     Dosage: UNK
     Route: 065

REACTIONS (12)
  - Withdrawal syndrome [Unknown]
  - Blood phosphorus decreased [Unknown]
  - Acidosis [Unknown]
  - Vomiting [Unknown]
  - Blood glucose fluctuation [Unknown]
  - Food craving [Unknown]
  - Vitamin D decreased [Recovering/Resolving]
  - Muscle spasms [Unknown]
  - Blood calcium decreased [Unknown]
  - Asthenia [Unknown]
  - Product dose omission issue [Unknown]
  - Product use in unapproved indication [Unknown]
